FAERS Safety Report 8967923 (Version 1)
Quarter: 2012Q4

REPORT INFORMATION
  Report Type: 
  Country: US (occurrence: US)
  Receive Date: 20121218
  Receipt Date: 20121218
  Transmission Date: 20130627
  Serious: No
  Sender: FDA-Public Use
  Company Number: US-GLAXOSMITHKLINE-A0984925A

PATIENT
  Age: 65 Year
  Sex: Female

DRUGS (4)
  1. COREG CR [Suspect]
     Indication: CARDIOMYOPATHY
     Dosage: 20MG Per day
     Route: 048
     Dates: start: 201204
  2. AMIODARONE HYDROCHLORIDE [Concomitant]
  3. DIGOXIN [Concomitant]
  4. ASPIRIN LOW DOSE [Concomitant]

REACTIONS (1)
  - Alopecia [Not Recovered/Not Resolved]
